FAERS Safety Report 4912129-X (Version None)
Quarter: 2006Q1

REPORT INFORMATION
  Report Type: 
  Country: None (occurrence: None)
  Receive Date: 20060215
  Receipt Date: 20050718
  Transmission Date: 20060701
  Serious: No
  Sender: FDA-Public Use
  Company Number: US-GLAXOSMITHKLINE-A0566889A

PATIENT
  Age: 67 Year
  Sex: Male

DRUGS (2)
  1. VALTREX [Suspect]
     Dosage: 1CAP THREE TIMES PER DAY
     Route: 048
     Dates: start: 20050706, end: 20050713
  2. NO CONCURRENT MEDICATION [Concomitant]

REACTIONS (2)
  - ABDOMINAL DISTENSION [None]
  - ABDOMINAL PAIN [None]
